FAERS Safety Report 12306003 (Version 2)
Quarter: 2016Q2

REPORT INFORMATION
  Report Type: Spontaneous
  Country: US (occurrence: US)
  Receive Date: 20160426
  Receipt Date: 20160601
  Transmission Date: 20160815
  Serious: Yes (Death, Other)
  Sender: FDA-Public Use
  Company Number: US-ENDO PHARMACEUTICALS INC.-2016-002790

PATIENT
  Sex: Male

DRUGS (1)
  1. OPANA ER [Suspect]
     Active Substance: OXYMORPHONE HYDROCHLORIDE
     Indication: PRODUCT USED FOR UNKNOWN INDICATION
     Route: 042

REACTIONS (5)
  - Intentional product use issue [Fatal]
  - Overdose [Fatal]
  - Septic shock [Fatal]
  - Staphylococcal infection [Fatal]
  - Sepsis [Fatal]

NARRATIVE: CASE EVENT DATE: 2015
